FAERS Safety Report 4755798-X (Version None)
Quarter: 2005Q3

REPORT INFORMATION
  Report Type: 
  Country: None (occurrence: None)
  Receive Date: 20050830
  Receipt Date: 20050729
  Transmission Date: 20060218
  Serious: No
  Sender: FDA-Public Use
  Company Number: US-BRISTOL-MYERS SQUIBB COMPANY-13059209

PATIENT
  Age: 55 Year
  Sex: Male

DRUGS (5)
  1. ABILIFY [Suspect]
     Indication: MODERATE MENTAL RETARDATION
     Dates: start: 20050505, end: 20050630
  2. PROZAC [Concomitant]
  3. SYNTHROID [Concomitant]
  4. NEURONTIN [Concomitant]
  5. DEPAKOTE [Concomitant]
     Dosage: DOSE VALUE:  500 MG IN THE MORNING AND 1000 MG IN THE EVENING.

REACTIONS (2)
  - DIFFICULTY IN WALKING [None]
  - PAIN IN EXTREMITY [None]
